FAERS Safety Report 25076460 (Version 3)
Quarter: 2025Q2

REPORT INFORMATION
  Report Type: Spontaneous
  Country: FI (occurrence: FI)
  Receive Date: 20250313
  Receipt Date: 20250408
  Transmission Date: 20250716
  Serious: Yes (Other)
  Sender: ELI LILLY AND CO
  Company Number: FI-ELI_LILLY_AND_COMPANY-FI202503003700

PATIENT
  Age: 48 Year
  Sex: Male
  Weight: 90 kg

DRUGS (7)
  1. MOUNJARO [Suspect]
     Active Substance: TIRZEPATIDE
     Indication: Weight control
     Dosage: 2.5 MG, WEEKLY (1/W)
     Route: 058
     Dates: start: 20240608, end: 20240706
  2. MOUNJARO [Suspect]
     Active Substance: TIRZEPATIDE
     Dosage: 5 MG, WEEKLY (1/W)
     Route: 058
     Dates: start: 20240706, end: 20240907
  3. MOUNJARO [Suspect]
     Active Substance: TIRZEPATIDE
     Dosage: 3 MG, WEEKLY (1/W)
     Route: 058
     Dates: start: 20240907, end: 20241026
  4. MOUNJARO [Suspect]
     Active Substance: TIRZEPATIDE
     Dosage: 2 MG, WEEKLY (1/W)
     Route: 058
     Dates: start: 20241026, end: 20241130
  5. MOUNJARO [Suspect]
     Active Substance: TIRZEPATIDE
     Dosage: 1 MG, WEEKLY (1/W)
     Route: 058
     Dates: start: 20241130, end: 20250111
  6. MOUNJARO [Suspect]
     Active Substance: TIRZEPATIDE
     Dosage: 0.75 MG, WEEKLY (1/W)
     Route: 058
     Dates: start: 20250111, end: 20250222
  7. ROSUVASTATIN [Concomitant]
     Active Substance: ROSUVASTATIN
     Indication: Product used for unknown indication
     Dosage: 20 MG, DAILY

REACTIONS (1)
  - Malignant melanoma [Not Recovered/Not Resolved]

NARRATIVE: CASE EVENT DATE: 20250303
